FAERS Safety Report 24335124 (Version 2)
Quarter: 2024Q4

REPORT INFORMATION
  Report Type: Spontaneous
  Country: PL (occurrence: PL)
  Receive Date: 20240918
  Receipt Date: 20241001
  Transmission Date: 20250114
  Serious: Yes (Other)
  Sender: NOVARTIS
  Company Number: PL-002147023-NVSC2024PL185011

PATIENT
  Age: 40 Year
  Sex: Female

DRUGS (1)
  1. KESIMPTA [Suspect]
     Active Substance: OFATUMUMAB
     Indication: Multiple sclerosis
     Dosage: 20 MG (INJECTION)
     Route: 050
     Dates: start: 202306

REACTIONS (8)
  - Anaemia [Unknown]
  - Dizziness [Unknown]
  - Fatigue [Unknown]
  - Disturbance in attention [Unknown]
  - Alopecia [Unknown]
  - Blood test abnormal [Unknown]
  - Blood iron decreased [Unknown]
  - Serum ferritin decreased [Unknown]
